FAERS Safety Report 8576350-4 (Version None)
Quarter: 2012Q3

REPORT INFORMATION
  Report Type: 
  Country: None (occurrence: None)
  Receive Date: 20120807
  Receipt Date: 20120731
  Transmission Date: 20120928
  Serious: Yes (Hospitalization, Other)
  Sender: FDA-Public Use
  Company Number: US-ROCHE-1092191

PATIENT
  Sex: Female

DRUGS (8)
  1. ADVAIR DISKUS 100/50 [Concomitant]
  2. XOLAIR [Suspect]
     Indication: ASTHMA
     Route: 058
  3. ATROVENT [Concomitant]
  4. ZOLOFT [Concomitant]
  5. NORVASC [Concomitant]
  6. ALBUTEROL [Concomitant]
  7. PREDNISONE [Concomitant]
  8. COMBIVENT [Concomitant]

REACTIONS (14)
  - COUGH [None]
  - HYPOXIA [None]
  - ACUTE RESPIRATORY FAILURE [None]
  - CHEST DISCOMFORT [None]
  - SPUTUM ABNORMAL [None]
  - CHRONIC OBSTRUCTIVE PULMONARY DISEASE [None]
  - ASTHMA [None]
  - RESPIRATORY ACIDOSIS [None]
  - WHEEZING [None]
  - MALAISE [None]
  - DYSPNOEA [None]
  - RADIOTHERAPY [None]
  - TACHYPNOEA [None]
  - GASTROOESOPHAGEAL REFLUX DISEASE [None]
